FAERS Safety Report 4646447-X (Version None)
Quarter: 2005Q2

REPORT INFORMATION
  Report Type: 
  Country: None (occurrence: None)
  Receive Date: 20050422
  Receipt Date: 20050412
  Transmission Date: 20051028
  Serious: Yes (Disabling)
  Sender: FDA-Public Use
  Company Number: 03P-087-0212206-00

PATIENT
  Age: 23 Year
  Sex: Male

DRUGS (11)
  1. KALETRA [Suspect]
     Indication: HIV INFECTION
     Dosage: 6 CAPSULE, 1 IN 1 D, PER ORAL
     Route: 048
     Dates: start: 20020304
  2. DIDANOSINE [Suspect]
     Indication: HIV INFECTION
     Dosage: SEE IMAGE
     Route: 048
     Dates: start: 20010401, end: 20010401
  3. DIDANOSINE [Suspect]
     Indication: HIV INFECTION
     Dosage: SEE IMAGE
     Route: 048
     Dates: start: 20010421, end: 20010421
  4. SANILVUDINE [Suspect]
     Indication: HIV INFECTION
     Dosage: 80 MG, 1 IN 1 D, PER ORAL
     Route: 048
     Dates: start: 20010801
  5. ABACAVIR [Suspect]
     Indication: HIV INFECTION
     Dosage: 600 MG, 1 IN 1 D, PER ORAL
     Route: 048
     Dates: start: 20010801
  6. NELFINAVIR [Suspect]
     Indication: HIV INFECTION
     Dosage: 2500 MG, 1 IN 1 D, PER ORAL
     Route: 048
     Dates: start: 20010401, end: 20020303
  7. EFAVIRENZ [Suspect]
     Indication: HIV INFECTION
     Dosage: 600 MG, 1 IN 1 D, PER ORAL
     Route: 048
     Dates: start: 20010401, end: 20020303
  8. LOPERAMIDE HYDROCHLORIDE [Concomitant]
  9. RURIOCTOCOG ALFA [Concomitant]
  10. FACTOR VIII, RECOMBINANT [Concomitant]
  11. AMPRENAVIR [Concomitant]

REACTIONS (5)
  - ASEPTIC NECROSIS BONE [None]
  - DIARRHOEA [None]
  - HIV WASTING SYNDROME [None]
  - HYPERLACTACIDAEMIA [None]
  - WEIGHT FLUCTUATION [None]
